FAERS Safety Report 14672785 (Version 2)
Quarter: 2018Q2

REPORT INFORMATION
  Report Type: Other
  Country: CA (occurrence: CA)
  Receive Date: 20180323
  Receipt Date: 20180422
  Transmission Date: 20180711
  Serious: Yes (Other)
  Sender: FDA-Public Use
  Company Number: CA-APOTEX-2018AP008239

PATIENT
  Age: 60 Year
  Sex: Female

DRUGS (4)
  1. FLUTICASONE. [Suspect]
     Active Substance: FLUTICASONE
     Indication: PRODUCT USED FOR UNKNOWN INDICATION
     Route: 065
  2. SALBUTAMOL [Suspect]
     Active Substance: ALBUTEROL
     Indication: PRODUCT USED FOR UNKNOWN INDICATION
     Route: 065
  3. UMECLIDINIUM BROMIDE [Suspect]
     Active Substance: UMECLIDINIUM BROMIDE
     Indication: PRODUCT USED FOR UNKNOWN INDICATION
     Route: 065
  4. BREO ELLIPTA [Suspect]
     Active Substance: FLUTICASONE FUROATE\VILANTEROL TRIFENATATE
     Indication: PRODUCT USED FOR UNKNOWN INDICATION
     Route: 065

REACTIONS (15)
  - Fungal infection [Unknown]
  - Hysterectomy [Unknown]
  - Urinary tract infection [Unknown]
  - Culture urine positive [Unknown]
  - Intestinal obstruction [Unknown]
  - Macular degeneration [Unknown]
  - Arthritis [Unknown]
  - Blood urine present [Unknown]
  - Stoma closure [Unknown]
  - Anaemia [Unknown]
  - Diverticulitis [Unknown]
  - Hiatus hernia [Unknown]
  - Chronic sinusitis [Unknown]
  - Drug intolerance [Unknown]
  - Knee arthroplasty [Unknown]
